FAERS Safety Report 7078664-6 (Version None)
Quarter: 2010Q4

REPORT INFORMATION
  Report Type: 
  Country: None (occurrence: None)
  Receive Date: 20101101
  Receipt Date: 20101101
  Transmission Date: 20110411
  Serious: Yes (Life-Threatening, Hospitalization, Disabling, Other)
  Sender: FDA-Public Use
  Company Number: None

PATIENT
  Sex: Female
  Weight: 48.0813 kg

DRUGS (1)
  1. COMBIVENT [Suspect]
     Indication: PULMONARY FUNCTION TEST
     Dosage: USE WHEN NEEDED 4 TO 6 TIMES DAILY
     Dates: start: 20080323, end: 20101022

REACTIONS (3)
  - ATRIAL FIBRILLATION [None]
  - CARDIAC DISORDER [None]
  - PNEUMONIA [None]
